FAERS Safety Report 14699566 (Version 1)
Quarter: 2018Q1

REPORT INFORMATION
  Report Type: Report from Study
  Country: NL (occurrence: NL)
  Receive Date: 20180330
  Receipt Date: 20180330
  Transmission Date: 20180509
  Serious: Yes (Hospitalization)
  Sender: FDA-Public Use
  Company Number: NL-ROCHE-2075309

PATIENT
  Age: 57 Year
  Sex: Female

DRUGS (3)
  1. CAPECITABINE. [Suspect]
     Active Substance: CAPECITABINE
     Indication: COLORECTAL CANCER
     Dosage: DOSE AND FREQUENCY AS PER PROTOCOL?DATE OF MOST RECENT DOSE PRIOR TO SAE: 14/FEB/2018
     Route: 065
     Dates: start: 20180130
  2. BEVACIZUMAB. [Suspect]
     Active Substance: BEVACIZUMAB
     Indication: COLORECTAL CANCER
     Dosage: DOSE AND FREQUENCY AS PER PROTOCOL?DATE OF MOST RECENT DOSE PRIOR TO SAE: 30/JAN/2018
     Route: 065
     Dates: start: 20180130
  3. OXALIPLATIN. [Suspect]
     Active Substance: OXALIPLATIN
     Indication: COLORECTAL CANCER
     Dosage: DOSE AND FREQUENCY AS PER PROTOCOL.?DATE OF MOST RECENT DOSE PRIOR TO SAE: 30/JAN/2018
     Route: 065
     Dates: start: 20180130

REACTIONS (4)
  - Bone marrow failure [Recovered/Resolved]
  - Mucosal inflammation [Recovered/Resolved]
  - Nausea [Not Recovered/Not Resolved]
  - Vomiting [Not Recovered/Not Resolved]

NARRATIVE: CASE EVENT DATE: 20180214
